FAERS Safety Report 20098161 (Version 1)
Quarter: 2021Q4

REPORT INFORMATION
  Report Type: Spontaneous
  Country: JP (occurrence: JP)
  Receive Date: 20211122
  Receipt Date: 20211122
  Transmission Date: 20220303
  Serious: Yes (Other)
  Sender: FDA-Public Use
  Company Number: JP-PFIZER INC-202101541020

PATIENT

DRUGS (2)
  1. INLYTA [Suspect]
     Active Substance: AXITINIB
     Route: 048
  2. OPDIVO [Suspect]
     Active Substance: NIVOLUMAB

REACTIONS (1)
  - Interstitial lung disease [Unknown]
